FAERS Safety Report 19911407 (Version 1)
Quarter: 2021Q4

REPORT INFORMATION
  Report Type: Spontaneous
  Country: US (occurrence: US)
  Receive Date: 20211001
  Receipt Date: 20211001
  Transmission Date: 20220303
  Serious: Yes (Other)
  Sender: FDA-Public Use
  Company Number: None

PATIENT
  Age: 9 Year
  Sex: Male
  Weight: 22.5 kg

DRUGS (2)
  1. COPPERTONE PURE AND SIMPLE SPF 50 [Suspect]
     Active Substance: ZINC OXIDE
  2. COPPERTONE SPORT [Suspect]
     Active Substance: AVOBENZONE\OCTISALATE\OCTOCRYLENE\OXYBENZONE

REACTIONS (6)
  - Rash [None]
  - Pain [None]
  - Blister [None]
  - Pruritus [None]
  - Irritability [None]
  - Rash [None]

NARRATIVE: CASE EVENT DATE: 20210818
